FAERS Safety Report 9470499 (Version 2)
Quarter: 2013Q4

REPORT INFORMATION
  Report Type: Spontaneous
  Country: IT (occurrence: IT)
  Receive Date: 20130822
  Receipt Date: 20131010
  Transmission Date: 20140711
  Serious: Yes (Hospitalization)
  Sender: FDA-Public Use
  Company Number: IT-RANBAXY-2013R1-72357

PATIENT
  Age: 35 Year
  Sex: Female

DRUGS (2)
  1. LORAZEPAM [Suspect]
     Indication: ANXIETY
     Dosage: 3MG, COMPLETE
     Route: 048
     Dates: start: 20130804, end: 20130804
  2. HALCION [Suspect]
     Indication: ANXIETY
     Dosage: 750 UG, COMPLETE
     Route: 048
     Dates: start: 20130805, end: 20130805

REACTIONS (2)
  - Nausea [Recovering/Resolving]
  - Vomiting [Recovering/Resolving]
